FAERS Safety Report 5909312-3 (Version None)
Quarter: 2008Q4

REPORT INFORMATION
  Report Type: 
  Country: None (occurrence: None)
  Receive Date: 20081006
  Receipt Date: 20080924
  Transmission Date: 20090506
  Serious: Yes (Death, Life-Threatening)
  Sender: FDA-Public Use
  Company Number: GB-PFIZER INC-2008059971

PATIENT
  Sex: Male

DRUGS (13)
  1. MARAVIROC [Suspect]
     Indication: HIV INFECTION
     Dosage: DAILY DOSE:150MG
     Route: 048
     Dates: start: 20071024, end: 20080526
  2. MARAVIROC [Suspect]
     Route: 048
     Dates: start: 20080617, end: 20080623
  3. ETRAVIRINE [Suspect]
     Indication: HIV INFECTION
     Dosage: DAILY DOSE:200MG
     Route: 048
     Dates: start: 20071024, end: 20080526
  4. ETRAVIRINE [Suspect]
     Route: 048
     Dates: start: 20080617, end: 20080623
  5. PREZISTA [Suspect]
     Indication: HIV INFECTION
     Dosage: DAILY DOSE:600MG
     Route: 048
     Dates: start: 20071024, end: 20080526
  6. PREZISTA [Suspect]
     Dates: start: 20080617, end: 20080623
  7. RITONAVIR [Suspect]
     Indication: HIV INFECTION
     Dosage: DAILY DOSE:100MG
     Route: 048
     Dates: start: 20071024, end: 20080526
  8. RITONAVIR [Suspect]
     Dates: start: 20080617, end: 20080623
  9. ANTIVIRALS FOR SYSTEMIC USE [Suspect]
     Indication: HIV INFECTION
     Route: 048
     Dates: start: 20071024, end: 20080526
  10. ANTIVIRALS FOR SYSTEMIC USE [Suspect]
     Dates: start: 20080617, end: 20080623
  11. LISINOPRIL [Concomitant]
     Dosage: DAILY DOSE:5MG
     Route: 048
  12. VALPROATE SODIUM [Concomitant]
     Indication: NEUROPATHY PERIPHERAL
     Dosage: DAILY DOSE:900MG
     Route: 048
     Dates: start: 20070901
  13. VALACYCLOVIR HCL [Concomitant]
     Indication: HERPES VIRUS INFECTION
     Dosage: DAILY DOSE:500MG
     Route: 048

REACTIONS (1)
  - INTESTINAL PERFORATION [None]
